FAERS Safety Report 5274457-0 (Version None)
Quarter: 2007Q1

REPORT INFORMATION
  Report Type: 
  Country: None (occurrence: None)
  Receive Date: 20070320
  Receipt Date: 20070308
  Transmission Date: 20070707
  Serious: Yes (Hospitalization)
  Sender: FDA-Public Use
  Company Number: 430004E07USA

PATIENT
  Age: 59 Year
  Sex: Male

DRUGS (2)
  1. NOVANTRONE [Suspect]
  2. HYDROXYCARBAMIDE [Concomitant]

REACTIONS (4)
  - DRUG ERUPTION [None]
  - GASTROINTESTINAL HAEMORRHAGE [None]
  - OESOPHAGITIS [None]
  - PANCYTOPENIA [None]
